FAERS Safety Report 12325135 (Version 2)
Quarter: 2016Q2

REPORT INFORMATION
  Report Type: Spontaneous
  Country: US (occurrence: US)
  Receive Date: 20160502
  Receipt Date: 20160621
  Transmission Date: 20160815
  Serious: Yes (Other)
  Sender: FDA-Public Use
  Company Number: US-RETROPHIN, INC.-2016RTN00007

PATIENT
  Age: 4 Year
  Sex: Female
  Weight: 15.2 kg

DRUGS (14)
  1. CHOLBAM [Suspect]
     Active Substance: CHOLIC ACID
     Dosage: 100 MG, 2X/DAY
     Route: 048
  2. AQUA E VITAMIN E [Concomitant]
  3. MEPHYTON [Concomitant]
     Active Substance: PHYTONADIONE
     Dosage: 2.5 MG, 1X/DAY
     Route: 048
  4. FERROUS SULFATE. [Concomitant]
     Active Substance: FERROUS SULFATE
     Dosage: 220 MG, 2X/DAY
     Route: 048
  5. VENTOLIN [Concomitant]
     Active Substance: ALBUTEROL SULFATE
     Dosage: 2.5 MG, 6X/DAY AS NEEDED
     Route: 048
  6. CHOLBAM [Suspect]
     Active Substance: CHOLIC ACID
     Indication: INBORN ERROR IN PRIMARY BILE ACID SYNTHESIS
     Dosage: 50 MG, 4X/DAY
     Route: 048
     Dates: start: 2015
  7. ROCALTROL [Concomitant]
     Active Substance: CALCITRIOL
     Dosage: 0.5 ?G, 1X/DAY
     Route: 048
  8. PROVENTIL HFA [Concomitant]
     Active Substance: ALBUTEROL SULFATE
     Dosage: 2 PUFFS, 6X/DAY
     Route: 055
  9. CHOLIC ACID [Suspect]
     Active Substance: CHOLIC ACID
     Indication: INBORN ERROR IN PRIMARY BILE ACID SYNTHESIS
     Dosage: UNK
     Dates: start: 20120306, end: 2015
  10. QVAR [Concomitant]
     Active Substance: BECLOMETHASONE DIPROPIONATE
     Dosage: 1 PUFF, 1X/DAY
     Route: 055
  11. ZYRTEC [Concomitant]
     Active Substance: CETIRIZINE HYDROCHLORIDE
     Dosage: 1 MG, 2X/DAY AS NEEDED
     Route: 048
  12. POLY-VI-SOL [Concomitant]
     Dosage: 1 ML, 1X/DAY
     Route: 048
  13. CALCIUM CARBONATE. [Concomitant]
     Active Substance: CALCIUM CARBONATE
     Dosage: 500 MG, 3X/DAY
     Route: 048
  14. FLONASE [Concomitant]
     Active Substance: FLUTICASONE PROPIONATE
     Dosage: 1 SPRAY DAILY AS NEEDED
     Route: 045

REACTIONS (15)
  - Toothache [Not Recovered/Not Resolved]
  - Seizure [Unknown]
  - Sleep disorder [Unknown]
  - Developmental delay [Not Recovered/Not Resolved]
  - Neuropathy peripheral [Not Recovered/Not Resolved]
  - Fall [Recovered/Resolved]
  - Nasal congestion [Not Recovered/Not Resolved]
  - Occult blood positive [Recovered/Resolved]
  - Skin hypopigmentation [Recovering/Resolving]
  - Speech disorder developmental [Not Recovered/Not Resolved]
  - Electroencephalogram abnormal [Unknown]
  - Iron deficiency anaemia [Not Recovered/Not Resolved]
  - Syncope [Recovered/Resolved]
  - Dental cosmetic procedure [Recovered/Resolved]
  - Pyrexia [Recovered/Resolved]

NARRATIVE: CASE EVENT DATE: 2011
